FAERS Safety Report 4691149-7 (Version None)
Quarter: 2005Q2

REPORT INFORMATION
  Report Type: 
  Country: None (occurrence: None)
  Receive Date: 20050610
  Receipt Date: 20050601
  Transmission Date: 20051028
  Serious: Yes (Other)
  Sender: FDA-Public Use
  Company Number: 2005-05-2224

PATIENT
  Age: 71 Year
  Sex: Female

DRUGS (1)
  1. CELESTAMINE TAB [Suspect]
     Indication: DERMATITIS
     Dosage: 2 TAB ORAL
     Route: 048

REACTIONS (1)
  - RETINAL VEIN OCCLUSION [None]
